FAERS Safety Report 6848320-5 (Version None)
Quarter: 2010Q3

REPORT INFORMATION
  Report Type: 
  Country: None (occurrence: None)
  Receive Date: 20100714
  Receipt Date: 20100702
  Transmission Date: 20110219
  Serious: Yes (Hospitalization)
  Sender: FDA-Public Use
  Company Number: RB-04114-2010

PATIENT
  Sex: Male

DRUGS (4)
  1. SUBOXONE [Suspect]
     Indication: DRUG DEPENDENCE
     Dosage: 8 MG TID SUBLINGUAL
     Route: 060
     Dates: start: 20090912
  2. LOVENOX [Concomitant]
  3. COUMADIN [Concomitant]
  4. TRAZODONE [Concomitant]

REACTIONS (9)
  - ABDOMINAL PAIN UPPER [None]
  - MUSCLE SPASMS [None]
  - NAUSEA [None]
  - PAIN [None]
  - PULMONARY EMBOLISM [None]
  - THROMBOSIS [None]
  - TOOTH DISCOLOURATION [None]
  - TOOTH DISORDER [None]
  - VOMITING [None]
